FAERS Safety Report 17235789 (Version 1)
Quarter: 2020Q1

REPORT INFORMATION
  Report Type: Spontaneous
  Country: US (occurrence: US)
  Receive Date: 20200103
  Receipt Date: 20200103
  Transmission Date: 20200409
  Serious: Yes (Life-Threatening, Hospitalization, Disabling)
  Sender: FDA-Public Use
  Company Number: None

PATIENT
  Age: 29 Year
  Sex: Female
  Weight: 56.7 kg

DRUGS (3)
  1. PREVIFEM [Suspect]
     Active Substance: ETHINYL ESTRADIOL\NORGESTIMATE
     Indication: ENDOMETRIOSIS
     Dosage: ?          QUANTITY:1 TABLET(S);?
     Route: 048
  2. ELIQUIS [Concomitant]
     Active Substance: APIXABAN
  3. MELATONIN [Concomitant]
     Active Substance: MELATONIN

REACTIONS (11)
  - Hypoaesthesia [None]
  - Paraesthesia [None]
  - Drooling [None]
  - Headache [None]
  - Visual impairment [None]
  - Paralysis [None]
  - Loss of consciousness [None]
  - Nasopharyngitis [None]
  - Dysarthria [None]
  - Pulmonary embolism [None]
  - Transient ischaemic attack [None]

NARRATIVE: CASE EVENT DATE: 20191203
